FAERS Safety Report 17484459 (Version 1)
Quarter: 2020Q1

REPORT INFORMATION
  Report Type: Spontaneous
  Country: SE (occurrence: SE)
  Receive Date: 20200302
  Receipt Date: 20200302
  Transmission Date: 20200409
  Serious: Yes (Other)
  Sender: FDA-Public Use
  Company Number: SE-BAYER-2020-030874

PATIENT
  Age: 29 Year
  Sex: Female
  Weight: 65 kg

DRUGS (2)
  1. MIRENA [Suspect]
     Active Substance: LEVONORGESTREL
     Dosage: 20?G PER DAY, CONT
     Route: 015
     Dates: start: 201801, end: 20190710
  2. NEO-MERCAZOLE [Concomitant]
     Active Substance: CARBIMAZOLE
     Dates: start: 201507, end: 20190310

REACTIONS (4)
  - Depressed mood [Recovered/Resolved]
  - Flat affect [Recovered/Resolved]
  - Libido decreased [Recovered/Resolved]
  - Increased appetite [Recovered/Resolved]

NARRATIVE: CASE EVENT DATE: 201801
